FAERS Safety Report 10626031 (Version 6)
Quarter: 2015Q1

REPORT INFORMATION
  Report Type: Report from Study
  Country: US (occurrence: US)
  Receive Date: 20141204
  Receipt Date: 20150309
  Transmission Date: 20150720
  Serious: Yes (Death, Hospitalization, Other)
  Sender: FDA-Public Use
  Company Number: US-ACTELION-A-NJ2014-108445

PATIENT
  Age: 64 Year
  Sex: Male
  Weight: 74.9 kg

DRUGS (3)
  1. REVATIO [Concomitant]
     Active Substance: SILDENAFIL CITRATE
  2. VELETRI [Suspect]
     Active Substance: EPOPROSTENOL
     Indication: PULMONARY HYPERTENSION
     Dosage: 18 NG/KG, PER MIN
     Route: 042
     Dates: start: 20140214
  3. LACTULOSE. [Concomitant]
     Active Substance: LACTULOSE

REACTIONS (14)
  - Weight decreased [Unknown]
  - Decreased appetite [Unknown]
  - Death [Fatal]
  - Encephalopathy [Unknown]
  - Ammonia increased [Unknown]
  - Hypotension [Unknown]
  - Ascites [Unknown]
  - Fluid retention [Unknown]
  - Hepatic encephalopathy [Unknown]
  - Hepatic failure [Unknown]
  - Paracentesis [Unknown]
  - Drug administration error [Unknown]
  - Confusional state [Unknown]
  - Repetitive speech [Unknown]

NARRATIVE: CASE EVENT DATE: 20150213
